FAERS Safety Report 20145526 (Version 1)
Quarter: 2021Q4

REPORT INFORMATION
  Report Type: Other
  Country: None (occurrence: US)
  Receive Date: 20211203
  Receipt Date: 20211203
  Transmission Date: 20220304
  Serious: Yes (Hospitalization)
  Sender: FDA-Public Use
  Company Number: US-B.Braun Medical Inc.-2122653

PATIENT
  Age: 35 Year
  Sex: Male

DRUGS (1)
  1. CEFEPIME HYDROCHLORIDE AND DEXTROSE [Suspect]
     Active Substance: CEFEPIME HYDROCHLORIDE

REACTIONS (9)
  - Abdominal pain [Recovered/Resolved]
  - Tachycardia [Recovered/Resolved]
  - Tachypnoea [Recovered/Resolved]
  - Hypotension [Recovered/Resolved]
  - Abdominal tenderness [Recovered/Resolved]
  - Splenomegaly [Recovered/Resolved]
  - Leukocytosis [Recovered/Resolved]
  - Normocytic anaemia [Recovered/Resolved]
  - Immune thrombocytopenia [Recovered/Resolved]
